FAERS Safety Report 8450871-7 (Version None)
Quarter: 2012Q2

REPORT INFORMATION
  Report Type: 
  Country: None (occurrence: None)
  Receive Date: 20120620
  Receipt Date: 20120612
  Transmission Date: 20120825
  Serious: No
  Sender: FDA-Public Use
  Company Number: FR-MUTUAL PHARMACEUTICAL COMPANY, INC.-BCTM20120028

PATIENT
  Age: 68 Year
  Sex: Male
  Weight: 60 kg

DRUGS (26)
  1. SULFAMETHOXAZOLE AND TRIMETHOPRIM [Suspect]
     Indication: BACTERIURIA
     Route: 048
     Dates: start: 20110426, end: 20110511
  2. SULFAMETHOXAZOLE AND TRIMETHOPRIM [Suspect]
     Indication: INFECTION PROPHYLAXIS
  3. RITUXIMAB [Suspect]
     Indication: NON-HODGKIN'S LYMPHOMA
     Route: 042
     Dates: start: 20110405, end: 20110726
  4. GEMCITABINE [Suspect]
     Indication: NON-HODGKIN'S LYMPHOMA
     Route: 042
     Dates: start: 20110405, end: 20110726
  5. AVODART [Concomitant]
     Indication: BENIGN PROSTATIC HYPERPLASIA
     Route: 065
     Dates: start: 20110405, end: 20110506
  6. XATRAL (ALFUZOSIN) [Concomitant]
     Indication: BENIGN PROSTATIC HYPERPLASIA
     Route: 065
     Dates: start: 20110405, end: 20110506
  7. FURADANTIN [Concomitant]
     Indication: BACTERIURIA
     Route: 065
     Dates: start: 20110422, end: 20110425
  8. ZOFRAN [Concomitant]
     Route: 065
     Dates: start: 20120517, end: 20120518
  9. ACETAMINOPHEN [Concomitant]
     Indication: DRUG TOXICITY PROPHYLAXIS
     Route: 065
     Dates: start: 20110426, end: 20120427
  10. ACETAMINOPHEN [Concomitant]
     Route: 065
     Dates: start: 20120517, end: 20120518
  11. INOTUZUMAB OZOGAMICIN [Suspect]
     Indication: NON-HODGKIN'S LYMPHOMA
     Route: 042
     Dates: start: 20110406, end: 20110727
  12. ACETAMINOPHEN [Concomitant]
     Indication: PAIN
     Route: 065
     Dates: start: 20110405, end: 20110510
  13. ACETAMINOPHEN [Concomitant]
     Indication: PYREXIA
  14. DUPHALAC [Concomitant]
     Indication: CONSTIPATION
     Route: 065
     Dates: start: 20110405, end: 20110501
  15. LASIX [Concomitant]
     Indication: PROPHYLAXIS
     Route: 065
     Dates: start: 20110408
  16. DEXAMETHASONE ACETATE [Suspect]
     Indication: NON-HODGKIN'S LYMPHOMA
     Route: 048
     Dates: start: 20110405, end: 20110729
  17. ACETAMINOPHEN [Concomitant]
     Indication: HEADACHE
  18. NEXIUM [Concomitant]
     Indication: PROPHYLAXIS
     Route: 065
     Dates: start: 20110405
  19. HEXTRIL (HEXETIDINE) [Concomitant]
     Indication: INFECTION PROPHYLAXIS
     Route: 065
     Dates: start: 20110405, end: 20110726
  20. ATARAX [Concomitant]
     Route: 065
     Dates: start: 20120517, end: 20120518
  21. CISPLATIN [Suspect]
     Indication: NON-HODGKIN'S LYMPHOMA
     Route: 042
     Dates: start: 20110405, end: 20110726
  22. SODIUM BICARBONATE [Concomitant]
     Indication: INFECTION PROPHYLAXIS
     Route: 065
     Dates: start: 20110405, end: 20110720
  23. ZOFRAN [Concomitant]
     Indication: DRUG TOXICITY PROPHYLAXIS
     Route: 065
     Dates: start: 20110426, end: 20120427
  24. PRIMPERAN TAB [Concomitant]
     Indication: NAUSEA
     Route: 065
     Dates: start: 20110405, end: 20110426
  25. ATARAX [Concomitant]
     Indication: DRUG TOXICITY PROPHYLAXIS
     Route: 065
     Dates: start: 20110426, end: 20120427
  26. MAGNESIUM [Concomitant]
     Indication: MINERAL SUPPLEMENTATION
     Route: 065
     Dates: start: 20110508, end: 20110508

REACTIONS (3)
  - THROMBOCYTOPENIA [None]
  - LYMPHOPENIA [None]
  - TOXIC SKIN ERUPTION [None]
